FAERS Safety Report 11766836 (Version 1)
Quarter: 2015Q4

REPORT INFORMATION
  Report Type: Spontaneous
  Country: US (occurrence: US)
  Receive Date: 20151123
  Receipt Date: 20151123
  Transmission Date: 20160304
  Serious: Yes (Other)
  Sender: FDA-Public Use
  Company Number: US-BEH-2015055877

PATIENT
  Sex: Female

DRUGS (1)
  1. PRIVIGEN [Suspect]
     Active Substance: HUMAN IMMUNOGLOBULIN G
     Indication: PRODUCT USED FOR UNKNOWN INDICATION

REACTIONS (9)
  - Device related infection [Unknown]
  - Asthenia [Unknown]
  - Cyst [Unknown]
  - Fungal infection [Unknown]
  - Ill-defined disorder [Unknown]
  - Upper respiratory tract infection [Unknown]
  - Malaise [Unknown]
  - Thrombosis [Unknown]
  - Fatigue [Unknown]
